FAERS Safety Report 7906407-X (Version None)
Quarter: 2011Q4

REPORT INFORMATION
  Report Type: 
  Country: None (occurrence: None)
  Receive Date: 20111110
  Receipt Date: 20111107
  Transmission Date: 20120403
  Serious: Yes (Disabling, Other)
  Sender: FDA-Public Use
  Company Number: ZA-PFIZER INC-2011273943

PATIENT
  Age: 53 Year
  Weight: 115 kg

DRUGS (5)
  1. DEPO-MEDROL [Suspect]
     Dosage: 80 MG, SINGLE (ONCE)
     Route: 026
     Dates: start: 20111020, end: 20111020
  2. LOSARTAN POTASSIUM AND HYDROCHLOROTHIAZIDE [Concomitant]
     Dosage: UNK
  3. MORPHINE [Concomitant]
     Indication: PAIN
  4. LIDOCAINE HYDROCHLORIDE [Suspect]
     Indication: LOCAL ANAESTHESIA
     Dosage: UNK
  5. STILPANE CAPSULE [Concomitant]
     Dosage: UNK

REACTIONS (1)
  - BLINDNESS UNILATERAL [None]
